FAERS Safety Report 8794352 (Version 2)
Quarter: 2014Q4

REPORT INFORMATION
  Report Type: Spontaneous
  Country: US (occurrence: US)
  Receive Date: 20120917
  Receipt Date: 20141110
  Transmission Date: 20150529
  Serious: Yes (Hospitalization)
  Sender: FDA-Public Use
  Company Number: PHEH2012US017862

PATIENT
  Age: 72 Year
  Sex: Female

DRUGS (3)
  1. VELCADE [Suspect]
     Active Substance: BORTEZOMIB
     Indication: PLASMA CELL MYELOMA
     Dosage: 1.3 MG, WEEKLY, (3 WEEKS ON 1 WEEK OFF)
     Route: 042
     Dates: start: 20110517
  2. DECADRON [Suspect]
     Active Substance: DEXAMETHASONE
     Indication: PLASMA CELL MYELOMA
     Dosage: 40 MG, WEEKLY, (3 WEEKS ON 1 WEEK OFF)
     Route: 042
     Dates: start: 20110513
  3. ZOMETA [Suspect]
     Active Substance: ZOLEDRONIC ACID
     Indication: PLASMA CELL MYELOMA
     Dosage: 2 MG, EVERY 28 DAYS
     Route: 042
     Dates: start: 20110513

REACTIONS (7)
  - Dizziness [Recovered/Resolved]
  - Haemoptysis [Unknown]
  - Lung infiltration [Unknown]
  - Dehydration [Unknown]
  - Pneumonia [Unknown]
  - Hypotension [Recovered/Resolved]
  - Asthenia [Unknown]

NARRATIVE: CASE EVENT DATE: 20110524
